FAERS Safety Report 25670901 (Version 1)
Quarter: 2025Q3

REPORT INFORMATION
  Report Type: Spontaneous
  Country: GB (occurrence: GB)
  Receive Date: 20250812
  Receipt Date: 20250812
  Transmission Date: 20251021
  Serious: Yes (Hospitalization, Other)
  Sender: AUROBINDO
  Company Number: GB-MHRA-MED-202507301042510080-QZSNR

PATIENT
  Age: 41 Year
  Sex: Female
  Weight: 57 kg

DRUGS (1)
  1. OXALIPLATIN [Suspect]
     Active Substance: OXALIPLATIN
     Indication: Gastrointestinal carcinoma
     Route: 065
     Dates: start: 20250717, end: 20250717

REACTIONS (1)
  - Trismus [Not Recovered/Not Resolved]

NARRATIVE: CASE EVENT DATE: 20250717
